FAERS Safety Report 5287800-3 (Version None)
Quarter: 2007Q1

REPORT INFORMATION
  Report Type: 
  Country: None (occurrence: None)
  Receive Date: 20070112
  Receipt Date: 20060418
  Transmission Date: 20070707
  Serious: No
  Sender: FDA-Public Use
  Company Number: 2005162007

PATIENT
  Sex: Female

DRUGS (1)
  1. DIFLUCAN [Suspect]
     Indication: ILL-DEFINED DISORDER

REACTIONS (5)
  - GASTROINTESTINAL DISORDER [None]
  - HYPERSENSITIVITY [None]
  - RASH [None]
  - STOMACH DISCOMFORT [None]
  - URTICARIA [None]
